FAERS Safety Report 24340087 (Version 1)
Quarter: 2024Q3

REPORT INFORMATION
  Report Type: Spontaneous
  Country: US (occurrence: US)
  Receive Date: 20240919
  Receipt Date: 20240919
  Transmission Date: 20241017
  Serious: Yes (Hospitalization)
  Sender: LUPIN
  Company Number: US-LUPIN PHARMACEUTICALS INC.-2024-09211

PATIENT

DRUGS (1)
  1. LISINOPRIL [Suspect]
     Active Substance: LISINOPRIL
     Indication: Product used for unknown indication
     Dosage: 2 DOSAGE FORM
     Route: 065

REACTIONS (9)
  - Hypersensitivity [Unknown]
  - Vasoconstriction [Unknown]
  - Insomnia [Unknown]
  - Nocturia [Unknown]
  - Hyponatraemia [Unknown]
  - Amnesia [Unknown]
  - Myalgia [Unknown]
  - Bone pain [Unknown]
  - Product substitution issue [Unknown]
